FAERS Safety Report 5284404-3 (Version None)
Quarter: 2007Q1

REPORT INFORMATION
  Report Type: 
  Country: None (occurrence: None)
  Receive Date: 20070330
  Receipt Date: 20070330
  Transmission Date: 20070707
  Serious: Yes (Hospitalization)
  Sender: FDA-Public Use
  Company Number: None

PATIENT
  Sex: Female
  Weight: 81.6475 kg

DRUGS (1)
  1. ENOXAPARIN SODIUM [Suspect]
     Indication: THROMBOSIS PROPHYLAXIS
     Dosage: 40 MG DAILY SUBQ
     Route: 058
     Dates: start: 20061226, end: 20061229

REACTIONS (8)
  - ANAPHYLACTIC REACTION [None]
  - CARDIO-RESPIRATORY ARREST [None]
  - ELECTROMECHANICAL DISSOCIATION [None]
  - EXTRADURAL HAEMATOMA [None]
  - HYPOAESTHESIA [None]
  - IMMOBILE [None]
  - MUSCULAR WEAKNESS [None]
  - PLATELET COUNT DECREASED [None]
